FAERS Safety Report 23994144 (Version 1)
Quarter: 2024Q2

REPORT INFORMATION
  Report Type: Spontaneous
  Country: US (occurrence: None)
  Receive Date: 20240618
  Receipt Date: 20240618
  Transmission Date: 20240715
  Serious: Yes (Hospitalization, Disabling)
  Sender: FDA-Public Use
  Company Number: None

PATIENT
  Age: 67 Year
  Sex: Female
  Weight: 94.5 kg

DRUGS (18)
  1. BACLOFEN [Suspect]
     Active Substance: BACLOFEN
     Indication: Cerebrovascular accident
     Dosage: OTHER QUANTITY : 1 TABLET(S);?OTHER FREQUENCY : 1/2 EVERY 4/5 HRS;?
     Route: 048
     Dates: start: 20231115, end: 20240509
  2. BACLOFEN [Suspect]
     Active Substance: BACLOFEN
     Indication: Muscle spasticity
  3. ALBUTEROL [Concomitant]
     Active Substance: ALBUTEROL
  4. TRELEGY ELLIPTA [Concomitant]
     Active Substance: FLUTICASONE FUROATE\UMECLIDINIUM BROMIDE\VILANTEROL TRIFENATATE
  5. inhalation powder [Concomitant]
  6. BACLOFEN [Concomitant]
     Active Substance: BACLOFEN
  7. DICLOFENAC SODIUM [Concomitant]
     Active Substance: DICLOFENAC\DICLOFENAC SODIUM
  8. ATORVASTATIN [Concomitant]
     Active Substance: ATORVASTATIN
  9. OMEPRAZOLE [Concomitant]
     Active Substance: DONEPEZIL HYDROCHLORIDE\OMEPRAZOLE\OMEPRAZOLE MAGNESIUM
  10. POTASSIUM CHLORIDE [Concomitant]
     Active Substance: POTASSIUM CHLORIDE
  11. HYDROCHLOROTHIAZIDE [Concomitant]
     Active Substance: HYDROCHLOROTHIAZIDE
  12. LOSARTAN [Concomitant]
     Active Substance: LOSARTAN
  13. COLACE [Concomitant]
     Active Substance: DOCUSATE SODIUM
  14. VITAMIN D3 [Concomitant]
     Active Substance: CHOLECALCIFEROL
  15. VITAMIN B12 [Concomitant]
     Active Substance: CYANOCOBALAMIN
  16. Probiotic Formula [Concomitant]
  17. ROBITUSSIN (GUAIFENESIN) [Concomitant]
     Active Substance: GUAIFENESIN
  18. ASPIRIN [Concomitant]
     Active Substance: ASPIRIN

REACTIONS (9)
  - Drug ineffective [None]
  - Chest discomfort [None]
  - Dyspnoea [None]
  - Therapy change [None]
  - General physical health deterioration [None]
  - Dizziness [None]
  - Poor quality sleep [None]
  - Fatigue [None]
  - Balance disorder [None]

NARRATIVE: CASE EVENT DATE: 20240312
